FAERS Safety Report 21174982 (Version 1)
Quarter: 2022Q3

REPORT INFORMATION
  Report Type: Spontaneous
  Country: US (occurrence: US)
  Receive Date: 20220805
  Receipt Date: 20220805
  Transmission Date: 20221027
  Serious: Yes (Other)
  Sender: FDA-Public Use
  Company Number: US-Accord-255119

PATIENT
  Age: 71 Year
  Sex: Female
  Weight: 84.82 kg

DRUGS (22)
  1. CARBOPLATIN [Suspect]
     Active Substance: CARBOPLATIN
     Indication: Breast cancer
     Route: 042
     Dates: start: 20160719, end: 20160719
  2. DOCETAXEL [Suspect]
     Active Substance: DOCETAXEL
     Indication: Breast cancer
     Route: 042
     Dates: start: 20160719, end: 20160719
  3. ACEBUTOLOL [Concomitant]
     Active Substance: ACEBUTOLOL
     Dosage: STRENGTH: 400MG
     Dates: start: 20080501
  4. ASPIRIN [Concomitant]
     Active Substance: ASPIRIN
     Dosage: STRENGTH: 81MG
     Dates: start: 20080501
  5. ISOSORBIDE MONONITRATE [Concomitant]
     Active Substance: ISOSORBIDE MONONITRATE
     Dosage: STRENGTH: 30MG
     Dates: start: 20080501
  6. LISINOPRIL [Concomitant]
     Active Substance: LISINOPRIL
     Dosage: STRENGTH: 20MG
     Dates: start: 20080501
  7. SIMVASTATIN [Concomitant]
     Active Substance: SIMVASTATIN
     Dosage: STRENGTH: 40MG
     Dates: start: 20080501
  8. SYNTHROID [Concomitant]
     Active Substance: LEVOTHYROXINE SODIUM
     Dosage: STRENGTH: 112MCG
     Dates: start: 20081005
  9. ARIMIDEX [Concomitant]
     Active Substance: ANASTROZOLE
     Dosage: STRENGTH: 1MG
     Dates: start: 20170608
  10. ELIQUIS [Concomitant]
     Active Substance: APIXABAN
     Dosage: STRENGTH: 5MG
     Dates: start: 20080501
  11. BUMETANIDE [Concomitant]
     Active Substance: BUMETANIDE
     Dosage: STRENGTH: 1MG
     Dates: start: 20080501
  12. VITAMIN E [Concomitant]
     Active Substance: .ALPHA.-TOCOPHEROL
     Dates: start: 20170801
  13. DOCETAXEL [Suspect]
     Active Substance: DOCETAXEL
     Indication: Breast cancer
     Route: 042
     Dates: start: 20160809, end: 20160809
  14. DOCETAXEL [Suspect]
     Active Substance: DOCETAXEL
     Indication: Breast cancer
     Route: 042
     Dates: start: 20160922, end: 20160922
  15. DOCETAXEL [Suspect]
     Active Substance: DOCETAXEL
     Indication: Breast cancer
     Route: 042
     Dates: start: 20161013, end: 20161013
  16. DOCETAXEL [Suspect]
     Active Substance: DOCETAXEL
     Indication: Breast cancer
     Route: 042
     Dates: start: 20160830, end: 20160830
  17. DOCETAXEL [Suspect]
     Active Substance: DOCETAXEL
     Indication: Breast cancer
     Route: 042
     Dates: start: 20161110, end: 20161110
  18. CARBOPLATIN [Suspect]
     Active Substance: CARBOPLATIN
     Indication: Breast cancer
     Route: 042
     Dates: start: 20160830, end: 20160830
  19. CARBOPLATIN [Suspect]
     Active Substance: CARBOPLATIN
     Indication: Breast cancer
     Route: 042
     Dates: start: 20160922, end: 20160922
  20. CARBOPLATIN [Suspect]
     Active Substance: CARBOPLATIN
     Indication: Breast cancer
     Route: 042
     Dates: start: 20161013, end: 20161013
  21. CARBOPLATIN [Suspect]
     Active Substance: CARBOPLATIN
     Indication: Breast cancer
     Route: 042
     Dates: start: 20161110, end: 20161110
  22. CARBOPLATIN [Suspect]
     Active Substance: CARBOPLATIN
     Indication: Breast cancer
     Route: 042
     Dates: start: 20160809, end: 20160809

REACTIONS (1)
  - Alopecia [Not Recovered/Not Resolved]

NARRATIVE: CASE EVENT DATE: 20160801
